FAERS Safety Report 4746896-5 (Version None)
Quarter: 2005Q3

REPORT INFORMATION
  Report Type: 
  Country: None (occurrence: None)
  Receive Date: 20050817
  Receipt Date: 20050523
  Transmission Date: 20060218
  Serious: Yes (Disabling)
  Sender: FDA-Public Use
  Company Number: DEWYE687523MAY05

PATIENT
  Sex: Male

DRUGS (3)
  1. ENBREL [Suspect]
     Indication: RHEUMATOID ARTHRITIS
     Dosage: UNKNOWN
     Route: 058
     Dates: start: 20041101
  2. CORTISONE ACETATE TAB [Concomitant]
     Dosage: UNKNOWN
  3. LANTAREL [Concomitant]

REACTIONS (1)
  - BRONCHIAL CARCINOMA [None]
